FAERS Safety Report 8328356-8 (Version None)
Quarter: 2012Q2

REPORT INFORMATION
  Report Type: 
  Country: None (occurrence: None)
  Receive Date: 20120502
  Receipt Date: 20120427
  Transmission Date: 20120825
  Serious: Yes (Hospitalization, Congenital Anomaly, Other)
  Sender: FDA-Public Use
  Company Number: US-PFIZER INC-2011280887

PATIENT
  Sex: Female
  Weight: 2.9 kg

DRUGS (12)
  1. ZOLOFT [Suspect]
     Indication: DEPRESSION
     Dosage: 50 MG
     Route: 064
     Dates: start: 20030207
  2. CLINDAMYCIN [Concomitant]
     Dosage: 900 MG, 3X/DAY FOR 48 HOURS
     Route: 064
     Dates: start: 20041112
  3. ZOLOFT [Suspect]
     Dosage: UNK
     Route: 064
     Dates: start: 20040425
  4. CALCIUM CARBONATE [Concomitant]
     Indication: DYSPEPSIA
     Dosage: TWO TABLETS THREE TIMES A DAY
     Route: 064
     Dates: start: 20041112
  5. BENTYL [Concomitant]
     Dosage: UNK
     Route: 064
     Dates: start: 20040425
  6. BETAMETHASONE [Concomitant]
     Dosage: 12 MG, UNK
     Route: 064
     Dates: start: 20041112
  7. ZITHROMAX [Concomitant]
     Indication: URINARY TRACT INFECTION
     Dosage: 250 MG, 1X/DAY
     Route: 064
     Dates: start: 20041112, end: 20041121
  8. ZOLOFT [Suspect]
     Dosage: 25 MG, 1X/DAY
     Route: 064
     Dates: start: 20041005
  9. ZOLOFT [Suspect]
     Dosage: 25 MG, UNK
     Route: 064
     Dates: start: 20041112
  10. MULTI-VITAMINS [Concomitant]
     Dosage: ONE TABLET ONCE DAILY
     Route: 064
     Dates: start: 20040520
  11. ZITHROMAX [Concomitant]
     Indication: EAR INFECTION
  12. PROMETHAZINE [Concomitant]
     Dosage: UNK
     Route: 064
     Dates: start: 20040617

REACTIONS (12)
  - MATERNAL EXPOSURE TIMING UNSPECIFIED [None]
  - CRANIOSYNOSTOSIS [None]
  - ANISOMETROPIA [None]
  - HYPERMETROPIA [None]
  - TORTICOLLIS [None]
  - PLAGIOCEPHALY [None]
  - ABDOMINAL HERNIA [None]
  - EYELID PTOSIS [None]
  - AMBLYOPIA [None]
  - ASTIGMATISM [None]
  - JAUNDICE NEONATAL [None]
  - SCAPHOCEPHALY [None]
